FAERS Safety Report 9195820 (Version 2)
Quarter: 2013Q2

REPORT INFORMATION
  Report Type: Spontaneous
  Country: US (occurrence: None)
  Receive Date: 20120703
  Receipt Date: 20121031
  Transmission Date: 20140414
  Serious: Yes (Other)
  Sender: FDA-Public Use
  Company Number: PHEH2012US010770

PATIENT
  Age: 41 Year
  Sex: Female

DRUGS (7)
  1. GILENYA [Suspect]
     Indication: MULTIPLE SCLEROSIS
     Route: 048
     Dates: start: 20120511, end: 20120522
  2. WELLBUTRIN (BUPROPION HYDROCHLORIDE) [Concomitant]
  3. SPIRONOLACTONE (SPIRONOLACTONE) [Concomitant]
  4. NEURONTIN (GABAPENTIN) [Concomitant]
  5. NEXIUM (ESOMEPRAZOLE MAGNESIUM) [Concomitant]
  6. DITROPAN (OXYBUTYNIN HYDROCHLORIDE) [Concomitant]
  7. BACLOFEN (BACLOFEN) [Concomitant]

REACTIONS (5)
  - Feeling abnormal [None]
  - Rash [None]
  - Dyspnoea [None]
  - Migraine [None]
  - Chest discomfort [None]
